FAERS Safety Report 9632504 (Version 4)
Quarter: 2014Q2

REPORT INFORMATION
  Report Type: Spontaneous
  Country: US (occurrence: US)
  Receive Date: 20131018
  Receipt Date: 20140528
  Transmission Date: 20141212
  Serious: Yes (Hospitalization, Other)
  Sender: FDA-Public Use
  Company Number: US-BRISTOL-MYERS SQUIBB COMPANY-19586726

PATIENT
  Age: 51 Year
  Sex: Female
  Weight: 108.39 kg

DRUGS (6)
  1. BYETTA [Suspect]
     Indication: TYPE 2 DIABETES MELLITUS
     Dosage: 15JAN11-30JUN11,15DEC11-11JUN12:10MCG:2/1/DAY?6JUN11:22OCT11,14JUL12:15OCT12:5MCG:2/1/DAY
     Route: 058
     Dates: start: 20110115
  2. METFORMIN HCL [Suspect]
     Indication: TYPE 2 DIABETES MELLITUS
  3. JANUVIA [Suspect]
     Indication: TYPE 2 DIABETES MELLITUS
     Route: 048
     Dates: start: 20110115
  4. LANTUS [Suspect]
     Indication: TYPE 2 DIABETES MELLITUS
  5. GLYBURIDE [Suspect]
     Indication: TYPE 2 DIABETES MELLITUS
  6. ACTOS [Suspect]
     Indication: TYPE 2 DIABETES MELLITUS

REACTIONS (4)
  - Papillary thyroid cancer [Unknown]
  - Blood glucose increased [Unknown]
  - Neuropathy peripheral [Unknown]
  - Cataract [Unknown]
